FAERS Safety Report 23190502 (Version 1)
Quarter: 2023Q4

REPORT INFORMATION
  Report Type: Other
  Country: None (occurrence: CN)
  Receive Date: 20231116
  Receipt Date: 20231116
  Transmission Date: 20240110
  Serious: Yes (Other)
  Sender: FDA-Public Use
  Company Number: CN-Appco Pharma LLC-2148344

PATIENT
  Age: 35 Year
  Sex: Male

DRUGS (3)
  1. SILDENAFIL CITRATE [Suspect]
     Active Substance: SILDENAFIL CITRATE
     Indication: Erectile dysfunction
     Route: 048
  2. TADALAFIL [Suspect]
     Active Substance: TADALAFIL
     Route: 065
  3. Prostaglandin E [Concomitant]
     Route: 065

REACTIONS (1)
  - Drug ineffective [Unknown]
